FAERS Safety Report 15044540 (Version 1)
Quarter: 2018Q2

REPORT INFORMATION
  Report Type: Spontaneous
  Country: US (occurrence: US)
  Receive Date: 20180621
  Receipt Date: 20180621
  Transmission Date: 20180711
  Serious: Yes (Other)
  Sender: FDA-Public Use
  Company Number: US-OTSUKA-12435830

PATIENT
  Age: 62 Year
  Sex: Female
  Weight: 43.08 kg

DRUGS (2)
  1. ABILIFY [Suspect]
     Active Substance: ARIPIPRAZOLE
     Indication: ANXIETY
     Dosage: 1 DF, QD (5 MG X 5 DAYS, THEN 2.5 MG, THEN 1.5 MG)
     Route: 048
     Dates: end: 20031106
  2. TRAZODONE HYDROCHLORIDE. [Concomitant]
     Active Substance: TRAZODONE HYDROCHLORIDE
     Indication: PRODUCT USED FOR UNKNOWN INDICATION
     Dosage: 10 MG, QD
     Route: 065

REACTIONS (9)
  - Seizure [Unknown]
  - Coordination abnormal [Unknown]
  - Insomnia [Unknown]
  - Neck pain [Unknown]
  - Fine motor skill dysfunction [Unknown]
  - Eye pain [Unknown]
  - Facial pain [Unknown]
  - Disturbance in attention [Unknown]
  - Confusional state [Unknown]

NARRATIVE: CASE EVENT DATE: 20031104
